FAERS Safety Report 5063984-7 (Version None)
Quarter: 2006Q3

REPORT INFORMATION
  Report Type: 
  Country: None (occurrence: None)
  Receive Date: 20060703
  Receipt Date: 20050913
  Transmission Date: 20061208
  Serious: No
  Sender: FDA-Public Use
  Company Number: 2005S1008982

PATIENT
  Age: 34 Year
  Sex: Male
  Weight: 68.0396 kg

DRUGS (4)
  1. CLOZAPINE [Suspect]
     Indication: SCHIZOPHRENIA
     Dosage: SEE IMAGE
     Route: 048
     Dates: start: 20040601
  2. CLOZAPINE [Suspect]
     Indication: SCHIZOPHRENIA
     Dosage: SEE IMAGE
     Route: 048
     Dates: start: 20040601
  3. BENZTROPINE MESYLATE [Concomitant]
  4. GEMFIBROZIL [Concomitant]

REACTIONS (1)
  - GRANULOCYTOPENIA [None]
